FAERS Safety Report 10416617 (Version 1)
Quarter: 2014Q3

REPORT INFORMATION
  Report Type: Spontaneous
  Country: US (occurrence: US)
  Receive Date: 20140828
  Receipt Date: 20140828
  Transmission Date: 20150326
  Serious: Yes (Other)
  Sender: FDA-Public Use
  Company Number: US-PFIZER INC-2014234652

PATIENT
  Age: 57 Year
  Sex: Female
  Weight: 54.42 kg

DRUGS (3)
  1. PREMPRO [Suspect]
     Active Substance: ESTROGENS, CONJUGATED\MEDROXYPROGESTERONE ACETATE
     Indication: MENOPAUSAL SYMPTOMS
     Dosage: 0.625 MG/2.5 MG, 1X/DAY
     Route: 048
     Dates: end: 201311
  2. PREMPRO [Suspect]
     Active Substance: ESTROGENS, CONJUGATED\MEDROXYPROGESTERONE ACETATE
     Dosage: 0.3 MG/1.5 MG, 1X/DAY
     Route: 048
     Dates: start: 201311
  3. SIMVASTATIN. [Concomitant]
     Active Substance: SIMVASTATIN
     Indication: BLOOD CHOLESTEROL INCREASED
     Dosage: UNK, AS NEEDED

REACTIONS (2)
  - Drug dose omission [Unknown]
  - Vaginal haemorrhage [Unknown]

NARRATIVE: CASE EVENT DATE: 2013
